FAERS Safety Report 14632897 (Version 1)
Quarter: 2018Q1

REPORT INFORMATION
  Report Type: Spontaneous
  Country: US (occurrence: US)
  Receive Date: 20180313
  Receipt Date: 20180313
  Transmission Date: 20180509
  Serious: No
  Sender: FDA-Public Use
  Company Number: US-SUNOVION-2018SUN000747

PATIENT
  Age: 60 Year
  Sex: Male
  Weight: 72.56 kg

DRUGS (4)
  1. LUNESTA [Suspect]
     Active Substance: ESZOPICLONE
     Indication: INSOMNIA
     Dosage: 3 MG, AS NECESSARY (1 TAB QHS PRN/PO)
     Route: 048
     Dates: start: 2013, end: 2014
  2. REMERON [Concomitant]
     Active Substance: MIRTAZAPINE
     Indication: DEPRESSION
     Dosage: 15 MG, QD
     Route: 048
  3. LISINOPRIL. [Concomitant]
     Active Substance: LISINOPRIL
     Indication: HYPERTENSION
     Dosage: 20 MG, QD
     Route: 048
  4. SEROQUEL [Concomitant]
     Active Substance: QUETIAPINE FUMARATE
     Indication: INSOMNIA
     Dosage: UNK, QD (1-2 TABS QHS/PO)
     Route: 048

REACTIONS (2)
  - Sleep apnoea syndrome [Not Recovered/Not Resolved]
  - Dysgeusia [Unknown]
